FAERS Safety Report 6596534-4 (Version None)
Quarter: 2010Q1

REPORT INFORMATION
  Report Type: 
  Country: None (occurrence: None)
  Receive Date: 20100222
  Receipt Date: 20100222
  Transmission Date: 20100710
  Serious: Yes (Death)
  Sender: FDA-Public Use
  Company Number: None

PATIENT
  Age: 58 Year
  Sex: Male
  Weight: 92.9874 kg

DRUGS (2)
  1. CELEBREX [Suspect]
     Indication: ARTHRALGIA
     Dosage: ONCE A DAY
     Dates: start: 20050726, end: 20050811
  2. CELEBREX [Suspect]
     Indication: ARTHRALGIA
     Dosage: TWICE A DAY
     Dates: start: 20040301, end: 20041201

REACTIONS (3)
  - ARTHRALGIA [None]
  - LIVER INJURY [None]
  - MULTI-ORGAN FAILURE [None]
